FAERS Safety Report 9333383 (Version 1)
Quarter: 2013Q2

REPORT INFORMATION
  Report Type: Spontaneous
  Country: US (occurrence: None)
  Receive Date: 20130604
  Receipt Date: 20130604
  Transmission Date: 20140414
  Serious: Yes (Other)
  Sender: FDA-Public Use
  Company Number: FK201301762

PATIENT
  Sex: Male

DRUGS (4)
  1. INTRALIPID [Suspect]
     Indication: PARENTERAL NUTRITION
     Route: 042
  2. DEXTROSE [Concomitant]
  3. TROPHAMINE [Concomitant]
  4. PEDIALYTE [Concomitant]

REACTIONS (2)
  - Cholestasis [None]
  - Condition aggravated [None]
